FAERS Safety Report 5140298-8 (Version None)
Quarter: 2006Q4

REPORT INFORMATION
  Report Type: 
  Country: None (occurrence: None)
  Receive Date: 20061031
  Receipt Date: 20061010
  Transmission Date: 20070319
  Serious: Yes (Life-Threatening, Hospitalization)
  Sender: FDA-Public Use
  Company Number: JP-GLAXOSMITHKLINE-B0441973A

PATIENT
  Age: 73 Year
  Sex: Male

DRUGS (1)
  1. CEFAMEZIN [Suspect]
     Indication: CELLULITIS
     Dosage: 1G PER DAY
     Route: 042
     Dates: start: 20060825, end: 20060825

REACTIONS (5)
  - ANAPHYLACTIC SHOCK [None]
  - BLOOD PRESSURE DECREASED [None]
  - DYSPNOEA [None]
  - GENERALISED ERYTHEMA [None]
  - RASH [None]
